FAERS Safety Report 20778319 (Version 1)
Quarter: 2022Q2

REPORT INFORMATION
  Report Type: Spontaneous
  Country: US (occurrence: None)
  Receive Date: 20220503
  Receipt Date: 20220503
  Transmission Date: 20220720
  Serious: Yes (Death, Hospitalization)
  Sender: FDA-Public Use
  Company Number: None

PATIENT
  Age: 70 Year
  Sex: Female
  Weight: 73.1 kg

DRUGS (2)
  1. ETOPOSIDE [Suspect]
     Active Substance: ETOPOSIDE
     Dates: end: 20211129
  2. CARBOPLATIN [Suspect]
     Active Substance: CARBOPLATIN
     Dates: end: 20211130

REACTIONS (8)
  - Nausea [None]
  - Vomiting [None]
  - Weight decreased [None]
  - Metastatic neoplasm [None]
  - Drug intolerance [None]
  - Central nervous system lesion [None]
  - Brain abscess [None]
  - Vasogenic cerebral oedema [None]

NARRATIVE: CASE EVENT DATE: 20211208
